FAERS Safety Report 20887357 (Version 3)
Quarter: 2022Q2

REPORT INFORMATION
  Report Type: Report from Study
  Country: BR (occurrence: BR)
  Receive Date: 20220528
  Receipt Date: 20220608
  Transmission Date: 20220720
  Serious: Yes (Death)
  Sender: FDA-Public Use
  Company Number: BR-NOVARTISPH-NVSC2022BR123369

PATIENT
  Age: 76 Year
  Sex: Female
  Weight: 83 kg

DRUGS (3)
  1. COSENTYX [Suspect]
     Active Substance: SECUKINUMAB
     Indication: Psoriasis
     Dosage: UNK, QMO
     Route: 058
  2. ENALAPRIL [Suspect]
     Active Substance: ENALAPRIL
     Indication: Hypertension
     Dosage: UNK, QD (IN THE MORNING)
     Route: 048
  3. METFORMIN [Suspect]
     Active Substance: METFORMIN HYDROCHLORIDE
     Indication: Diabetes mellitus
     Dosage: UNK, QD (IN THE MORNING)
     Route: 048

REACTIONS (4)
  - Infarction [Fatal]
  - Cardiac arrest [Fatal]
  - Chest pain [Fatal]
  - Troponin increased [Fatal]

NARRATIVE: CASE EVENT DATE: 20220228
